FAERS Safety Report 5607692-X (Version None)
Quarter: 2008Q1

REPORT INFORMATION
  Report Type: 
  Country: None (occurrence: None)
  Receive Date: 20080130
  Receipt Date: 20080125
  Transmission Date: 20080703
  Serious: Yes (Life-Threatening, Other)
  Sender: FDA-Public Use
  Company Number: DE-BAYER-200711218BVD

PATIENT
  Age: 41 Year
  Sex: Male
  Weight: 80 kg

DRUGS (3)
  1. AVELOX [Suspect]
     Indication: BRONCHITIS
     Dosage: TOTAL DAILY DOSE: 400 MG  UNIT DOSE: 400 MG
     Route: 048
     Dates: start: 20071008, end: 20071014
  2. KLACID [Suspect]
     Indication: BRONCHITIS
     Dosage: TOTAL DAILY DOSE: 500 MG
     Route: 048
     Dates: start: 20071004, end: 20071008
  3. SYMBICORT [Concomitant]
     Indication: ASTHMA
     Dosage: TOTAL DAILY DOSE: 2 PUFF
     Route: 065

REACTIONS (2)
  - HAEMATOMA [None]
  - THROMBOCYTOPENIA [None]
